FAERS Safety Report 23935451 (Version 2)
Quarter: 2024Q3

REPORT INFORMATION
  Report Type: Spontaneous
  Country: US (occurrence: US)
  Receive Date: 20240604
  Receipt Date: 20240904
  Transmission Date: 20241017
  Serious: No
  Sender: HIKMA
  Company Number: HIKM2402319

PATIENT
  Sex: Female

DRUGS (1)
  1. LISDEXAMFETAMINE [Suspect]
     Active Substance: LISDEXAMFETAMINE
     Indication: Product used for unknown indication
     Dosage: UNKNOWN
     Route: 065

REACTIONS (3)
  - Drug ineffective [Unknown]
  - Accidental underdose [Unknown]
  - Poor quality product administered [Unknown]
